FAERS Safety Report 4442137-7 (Version None)
Quarter: 2004Q3

REPORT INFORMATION
  Report Type: 
  Country: None (occurrence: None)
  Receive Date: 20040907
  Receipt Date: 20040713
  Transmission Date: 20050211
  Serious: Yes (Other)
  Sender: FDA-Public Use
  Company Number: 200416967GDDC

PATIENT
  Age: 79 Year
  Sex: Female

DRUGS (7)
  1. ARAVA [Suspect]
     Indication: RHEUMATOID ARTHRITIS
     Route: 048
     Dates: start: 20000501, end: 20040601
  2. PREDNISONE [Concomitant]
     Dosage: DOSE: UNK
  3. MS CONTIN [Concomitant]
     Dosage: DOSE: UNK
  4. AMYTAL [Concomitant]
     Dosage: DOSE: UNK
  5. CALCIUM [Concomitant]
     Route: 048
  6. THORAZINE [Concomitant]
     Dosage: DOSE: UNK
  7. TRAMAL - SLOW RELEASE [Concomitant]
     Indication: PAIN

REACTIONS (10)
  - ALANINE AMINOTRANSFERASE INCREASED [None]
  - BLOOD ALKALINE PHOSPHATASE INCREASED [None]
  - GAMMA-GLUTAMYLTRANSFERASE INCREASED [None]
  - HAEMOGLOBIN DECREASED [None]
  - HEPATOMEGALY [None]
  - LIVER FUNCTION TEST ABNORMAL [None]
  - NEUTROPHIL COUNT DECREASED [None]
  - RASH GENERALISED [None]
  - RASH PRURITIC [None]
  - WHITE BLOOD CELL COUNT DECREASED [None]
